FAERS Safety Report 9130334 (Version 1)
Quarter: 2013Q1

REPORT INFORMATION
  Report Type: Spontaneous
  Country: CN (occurrence: CN)
  Receive Date: 20130228
  Receipt Date: 20130228
  Transmission Date: 20140127
  Serious: Yes (Death, Other)
  Sender: FDA-Public Use
  Company Number: PHHY2012CN127713

PATIENT
  Age: 76 Year
  Sex: Male
  Weight: 67 kg

DRUGS (14)
  1. TEGRETOL [Suspect]
     Indication: PAIN
     Dosage: 0.2 G, BID
     Route: 048
     Dates: start: 20110131, end: 20110211
  2. NIMESULIDE [Suspect]
     Indication: PAIN
  3. DEXAMETHASONE [Suspect]
     Dosage: 10 MG, UNK
     Route: 042
     Dates: start: 20110106
  4. DOLANTINA [Suspect]
     Indication: PAIN
     Route: 030
  5. BUCINNAZINE [Suspect]
     Indication: PAIN
     Route: 030
  6. TIENAM [Suspect]
     Dosage: 0.5 G, Q8H
     Route: 042
  7. TIENAM [Suspect]
     Dosage: 0.4 UKN, Q8H
  8. MOXIFLOXACIN [Suspect]
  9. UNSPECIFIED [Suspect]
  10. EPINEPHRINE [Suspect]
  11. ATROPINE [Suspect]
  12. ISOPROTERENOL [Suspect]
  13. METHYLPREDNISOLONE [Suspect]
  14. CEFTIZOXIME SODIUM [Suspect]

REACTIONS (14)
  - Agranulocytosis [Fatal]
  - Bronchitis chronic [Unknown]
  - Coma [Unknown]
  - Acute respiratory failure [Unknown]
  - Lung infection [Unknown]
  - Pneumothorax [Unknown]
  - Multi-organ failure [Unknown]
  - White blood cell count decreased [Unknown]
  - Body temperature increased [Unknown]
  - Herpes zoster [Unknown]
  - Neuralgia [Unknown]
  - Tachypnoea [Unknown]
  - Dyspnoea [Unknown]
  - Heart rate decreased [Unknown]
